FAERS Safety Report 20455860 (Version 6)
Quarter: 2022Q3

REPORT INFORMATION
  Report Type: Spontaneous
  Country: US (occurrence: US)
  Receive Date: 20220210
  Receipt Date: 20220914
  Transmission Date: 20221027
  Serious: Yes (Hospitalization)
  Sender: FDA-Public Use
  Company Number: US-PFIZER INC-202200058263

PATIENT
  Age: 77 Year
  Sex: Female

DRUGS (2)
  1. XELJANZ [Suspect]
     Active Substance: TOFACITINIB CITRATE
     Indication: Rheumatoid arthritis
     Dosage: 10 MG, DAILY (TWO 5 MG TABS DAILY AND NOT 5 MG TWICE DAILY)
     Route: 048
     Dates: start: 202201
  2. XELJANZ [Suspect]
     Active Substance: TOFACITINIB CITRATE
     Dosage: 10 MG, DAILY (TWO 5 MG TABS DAILY AND NOT 5 MG TWICE DAILY)
     Route: 048

REACTIONS (8)
  - Delusion [Unknown]
  - Eating disorder [Unknown]
  - Disorientation [Unknown]
  - Drug ineffective [Unknown]
  - Off label use [Unknown]
  - Discouragement [Unknown]
  - Depression [Unknown]
  - Back pain [Not Recovered/Not Resolved]

NARRATIVE: CASE EVENT DATE: 20220101
